FAERS Safety Report 9510250 (Version 1)
Quarter: 2013Q3

REPORT INFORMATION
  Report Type: Spontaneous
  Country: US (occurrence: US)
  Receive Date: 20130909
  Receipt Date: 20130909
  Transmission Date: 20140515
  Serious: Yes (Other)
  Sender: FDA-Public Use
  Company Number: US-BRISTOL-MYERS SQUIBB COMPANY-18594531

PATIENT
  Sex: Female

DRUGS (2)
  1. ABILIFY TABS 5 MG [Suspect]
     Indication: BIPOLAR DISORDER
  2. CYMBALTA [Suspect]

REACTIONS (2)
  - Self injurious behaviour [Unknown]
  - Irritability [Unknown]
